FAERS Safety Report 8183744-8 (Version None)
Quarter: 2012Q1

REPORT INFORMATION
  Report Type: 
  Country: None (occurrence: None)
  Receive Date: 20120305
  Receipt Date: 20120301
  Transmission Date: 20120608
  Serious: Yes (Death)
  Sender: FDA-Public Use
  Company Number: PHEH2012US004906

PATIENT
  Sex: Female

DRUGS (6)
  1. EXTAVIA [Suspect]
     Dosage: 0.3 MG, QOD
     Route: 058
  2. PAXIL [Concomitant]
     Dosage: 20 MG, UNK
     Route: 048
  3. MULTI-VITAMIN [Concomitant]
     Dosage: UNK UKN, UNK
  4. ASCORBIC ACID [Concomitant]
     Dosage: 1000 MG, UNK
     Route: 048
  5. VITAMIN D [Concomitant]
     Dosage: 1000 U, UNK
     Route: 048
  6. VITAMIN B-12 [Concomitant]
     Dosage: UNK UKN, UNK
     Route: 048

REACTIONS (1)
  - DEATH [None]
